FAERS Safety Report 7151094-4 (Version None)
Quarter: 2010Q4

REPORT INFORMATION
  Report Type: 
  Country: None (occurrence: None)
  Receive Date: 20101122
  Receipt Date: 20100209
  Transmission Date: 20110411
  Serious: Yes (Hospitalization)
  Sender: FDA-Public Use
  Company Number: 2010SP007986

PATIENT
  Age: 37 Year
  Sex: Female
  Weight: 68 kg

DRUGS (3)
  1. PEG-INTRON [Suspect]
     Indication: HEPATITIS C
     Dosage: 100 MG, SC
     Route: 058
     Dates: start: 20090629, end: 20100208
  2. PEG-INTRON [Suspect]
     Indication: HEPATITIS C
     Dosage: 1000 MG, PO
     Route: 048
     Dates: start: 20090629, end: 20100208
  3. OXYCONTIN [Concomitant]

REACTIONS (10)
  - ARTHRITIS INFECTIVE [None]
  - BIPOLAR DISORDER [None]
  - CELLULITIS [None]
  - INCORRECT ROUTE OF DRUG ADMINISTRATION [None]
  - INJECTION SITE INFECTION [None]
  - INTENTIONAL DRUG MISUSE [None]
  - NECROTISING FASCIITIS [None]
  - STAPHYLOCOCCAL ABSCESS [None]
  - STREPTOCOCCAL INFECTION [None]
  - SUBCUTANEOUS ABSCESS [None]
